FAERS Safety Report 8015956-8 (Version None)
Quarter: 2011Q4

REPORT INFORMATION
  Report Type: 
  Country: None (occurrence: None)
  Receive Date: 20111228
  Receipt Date: 20111228
  Transmission Date: 20120403
  Serious: No
  Sender: FDA-Public Use
  Company Number: None

PATIENT
  Age: 61 Year
  Sex: Male
  Weight: 76.2043 kg

DRUGS (3)
  1. DEPAKOTE ER [Suspect]
     Indication: SCHIZOAFFECTIVE DISORDER
     Dosage: DEPAKOTE ER 1500MG BID PO FOR ^YEARS^
     Route: 048
  2. FANAPT [Suspect]
     Indication: SCHIZOAFFECTIVE DISORDER
     Dosage: FANAPT 12MG BID PO
     Route: 048
     Dates: start: 20110301
  3. FULL LIST OF ALL MEDICATIONS HE WAS ON AT THIS TIME IS ATTACHED ; SEE [Concomitant]

REACTIONS (8)
  - WEIGHT DECREASED [None]
  - THROMBOCYTOPENIA [None]
  - LEUKOPENIA [None]
  - LETHARGY [None]
  - OXYGEN SATURATION DECREASED [None]
  - MOTOR DYSFUNCTION [None]
  - COGNITIVE DISORDER [None]
  - HYPOTENSION [None]
